FAERS Safety Report 11064236 (Version 1)
Quarter: 2015Q2

REPORT INFORMATION
  Report Type: Spontaneous
  Country: CL (occurrence: CL)
  Receive Date: 20150424
  Receipt Date: 20150424
  Transmission Date: 20150821
  Serious: Yes (Hospitalization, Disabling)
  Sender: FDA-Public Use
  Company Number: CL-BAUSCH-SYM-2014-21367

PATIENT
  Age: 34 Year
  Sex: Female

DRUGS (5)
  1. AMPICILLIN [Concomitant]
     Active Substance: AMPICILLIN
     Indication: LIVER ABSCESS
  2. LINEZOLID. [Concomitant]
     Active Substance: LINEZOLID
     Indication: LIVER ABSCESS
  3. METRONIDAZOLE. [Suspect]
     Active Substance: METRONIDAZOLE
     Indication: LIVER ABSCESS
     Route: 065
  4. CEFTRIAXONE. [Concomitant]
     Active Substance: CEFTRIAXONE
     Indication: LIVER ABSCESS
  5. CIPROFLOXACIN. [Concomitant]
     Active Substance: CIPROFLOXACIN
     Indication: LIVER ABSCESS

REACTIONS (2)
  - Polyneuropathy [Not Recovered/Not Resolved]
  - Cerebellar syndrome [Recovering/Resolving]
